FAERS Safety Report 7584956-4 (Version None)
Quarter: 2011Q2

REPORT INFORMATION
  Report Type: 
  Country: None (occurrence: None)
  Receive Date: 20110630
  Receipt Date: 20110627
  Transmission Date: 20111010
  Serious: Yes (Hospitalization, Other)
  Sender: FDA-Public Use
  Company Number: US-PFIZER INC-2009157784

PATIENT
  Sex: Female

DRUGS (3)
  1. DILANTIN [Suspect]
     Dosage: 100 MG
  2. DRUG, UNSPECIFIED [Suspect]
  3. PHENYTOIN [Suspect]

REACTIONS (6)
  - PNEUMONIA [None]
  - TREMOR [None]
  - CONVULSION [None]
  - DRUG INEFFECTIVE [None]
  - FALL [None]
  - OVERDOSE [None]
